FAERS Safety Report 7289545-7 (Version None)
Quarter: 2011Q1

REPORT INFORMATION
  Report Type: 
  Country: None (occurrence: None)
  Receive Date: 20110213
  Receipt Date: 20110205
  Transmission Date: 20110831
  Serious: Yes (Death)
  Sender: FDA-Public Use
  Company Number: MX-BRISTOL-MYERS SQUIBB COMPANY-15537020

PATIENT
  Age: 78 Year
  Sex: Female

DRUGS (1)
  1. COAPROVEL TABS 150MG/12.5MG [Suspect]
     Indication: HYPERTENSION
     Dosage: 1DF:1TABS COAPROVEL TABS 150MG+12.5MG
     Route: 048
     Dates: start: 20040101, end: 20100101

REACTIONS (1)
  - BONE NEOPLASM MALIGNANT [None]
